FAERS Safety Report 12330011 (Version 1)
Quarter: 2016Q2

REPORT INFORMATION
  Report Type: Report from Study
  Country: CA (occurrence: CA)
  Receive Date: 20160504
  Receipt Date: 20160504
  Transmission Date: 20160815
  Serious: Yes (Other)
  Sender: FDA-Public Use
  Company Number: CA-AMGEN-CANSL2016045993

PATIENT
  Age: 55 Year
  Sex: Female

DRUGS (2)
  1. REPATHA [Suspect]
     Active Substance: EVOLOCUMAB
     Indication: PRODUCT USED FOR UNKNOWN INDICATION
     Dosage: 140 MG/ML, UNK
     Route: 065
     Dates: start: 20160409
  2. ASA [Concomitant]
     Active Substance: ASPIRIN
     Dosage: 80 MG, UNK
     Route: 065

REACTIONS (15)
  - Sputum discoloured [Recovering/Resolving]
  - Dizziness [Unknown]
  - Injection site pain [Unknown]
  - Abasia [Recovering/Resolving]
  - Back pain [Unknown]
  - Productive cough [Recovering/Resolving]
  - Fatigue [Unknown]
  - Chest pain [Recovering/Resolving]
  - Heart rate increased [Unknown]
  - Headache [Recovering/Resolving]
  - Back disorder [Unknown]
  - Burning sensation [Recovering/Resolving]
  - Myocardial infarction [Recovering/Resolving]
  - Nausea [Recovering/Resolving]
  - Neck pain [Recovering/Resolving]

NARRATIVE: CASE EVENT DATE: 201604
